FAERS Safety Report 11413086 (Version 1)
Quarter: 2015Q3

REPORT INFORMATION
  Report Type: Spontaneous
  Country: US (occurrence: US)
  Receive Date: 20150821
  Receipt Date: 20150821
  Transmission Date: 20151125
  Serious: No
  Sender: FDA-Public Use
  Company Number: US-ELI_LILLY_AND_COMPANY-US201107002350

PATIENT
  Age: 86 Year
  Sex: Male

DRUGS (5)
  1. NOVOLIN [Concomitant]
     Active Substance: INSULIN HUMAN
  2. HUMULIN 70/30 [Suspect]
     Active Substance: INSULIN HUMAN
     Indication: DIABETES MELLITUS
     Dosage: 16 U, EACH MORNING
  3. HUMULIN 70/30 [Suspect]
     Active Substance: INSULIN HUMAN
     Dosage: 12 U, EACH EVENING
  4. HUMULIN 70/30 [Suspect]
     Active Substance: INSULIN HUMAN
     Dosage: 12 U, EACH MORNING
  5. HUMULIN 70/30 [Suspect]
     Active Substance: INSULIN HUMAN
     Dosage: 8 U, EACH EVENING

REACTIONS (11)
  - Drug hypersensitivity [Unknown]
  - General physical health deterioration [Unknown]
  - Dysphagia [Recovered/Resolved]
  - Sensation of foreign body [Unknown]
  - Tooth extraction [Unknown]
  - Oropharyngeal pain [Unknown]
  - Hiccups [Unknown]
  - Weight decreased [Unknown]
  - Feeding disorder [Unknown]
  - Increased upper airway secretion [Unknown]
  - Paranasal sinus hypersecretion [Unknown]

NARRATIVE: CASE EVENT DATE: 20110604
